FAERS Safety Report 8366900-5 (Version None)
Quarter: 2012Q2

REPORT INFORMATION
  Report Type: 
  Country: None (occurrence: None)
  Receive Date: 20120517
  Receipt Date: 20120511
  Transmission Date: 20120825
  Serious: Yes (Life-Threatening, Hospitalization, Other)
  Sender: FDA-Public Use
  Company Number: AU-B.I. PHARMACEUTICALS,INC./RIDGEFIELD-2012-AU-00755AU

PATIENT
  Sex: Male
  Weight: 90 kg

DRUGS (6)
  1. NEBIVOLOL HCL [Concomitant]
     Dosage: 1.25 MG
  2. RAMIPRIL [Concomitant]
     Dosage: 10 MG
  3. FELODIPINE [Concomitant]
     Dosage: 5 MG
  4. OMEPRAZOLE [Concomitant]
     Dosage: 20 MG
  5. TRAJENTA [Suspect]
     Indication: DIABETES MELLITUS
     Dosage: 5 MG
     Dates: start: 20120307, end: 20120315
  6. COPLAVIX [Concomitant]

REACTIONS (8)
  - JOINT SWELLING [None]
  - PAIN [None]
  - PRURITUS [None]
  - ANAPHYLACTIC REACTION [None]
  - RASH [None]
  - CONTUSION [None]
  - OEDEMA PERIPHERAL [None]
  - RESPIRATORY ARREST [None]
